FAERS Safety Report 5079860-X (Version None)
Quarter: 2006Q3

REPORT INFORMATION
  Report Type: 
  Country: None (occurrence: None)
  Receive Date: 20060815
  Receipt Date: 20060313
  Transmission Date: 20061208
  Serious: Yes (Hospitalization)
  Sender: FDA-Public Use
  Company Number: PHBS2006CA03956

PATIENT
  Age: 50 Year
  Sex: Female

DRUGS (8)
  1. TEGRETOL [Suspect]
     Indication: EPILEPSY
     Route: 048
     Dates: start: 20060223, end: 20060223
  2. TEGRETOL [Suspect]
     Dosage: 800 MG/DAY
     Route: 048
     Dates: end: 20051101
  3. KEPPRA [Suspect]
     Indication: EPILEPSY
     Dosage: 500 MG, BID
     Route: 048
     Dates: start: 20051105, end: 20051205
  4. KEPPRA [Suspect]
     Dosage: 1000 MG, BID
     Route: 048
     Dates: start: 20051206, end: 20060224
  5. KEPPRA [Suspect]
     Dosage: 500 MG, BID
     Dates: start: 20060301
  6. VALPROIC ACID [Suspect]
     Indication: EPILEPSY
     Dosage: 750 MG, BID
     Route: 048
     Dates: end: 20060225
  7. VALPROIC ACID [Suspect]
     Dosage: 500 MG, BID
     Route: 048
     Dates: start: 20060226
  8. DILANTIN [Suspect]
     Indication: EPILEPSY
     Dosage: 100 MG, TID
     Route: 042
     Dates: start: 20060224, end: 20060226

REACTIONS (7)
  - APLASTIC ANAEMIA [None]
  - DEPRESSED LEVEL OF CONSCIOUSNESS [None]
  - DRUG LEVEL INCREASED [None]
  - INTENTIONAL OVERDOSE [None]
  - LEUKOPENIA [None]
  - SUICIDE ATTEMPT [None]
  - THROMBOCYTOPENIA [None]
